FAERS Safety Report 6878432-1 (Version None)
Quarter: 2010Q3

REPORT INFORMATION
  Report Type: 
  Country: None (occurrence: None)
  Receive Date: 20100728
  Receipt Date: 20100719
  Transmission Date: 20110219
  Serious: Yes (Disabling, Other)
  Sender: FDA-Public Use
  Company Number: US-CELGENEUS-163-20785-10011749

PATIENT
  Sex: Female

DRUGS (15)
  1. THALOMID [Suspect]
     Indication: BEHCET'S SYNDROME
     Route: 048
     Dates: start: 20100104
  2. THALOMID [Suspect]
     Route: 048
     Dates: start: 20100501
  3. PREDNISONE [Concomitant]
     Route: 065
     Dates: start: 20070101, end: 20100201
  4. PREDNISONE [Concomitant]
  5. COUMADIN [Concomitant]
     Route: 048
     Dates: start: 20100101
  6. SPORANOX [Concomitant]
     Indication: CANDIDIASIS
     Route: 048
     Dates: start: 20100101, end: 20100501
  7. COREG [Concomitant]
     Indication: HYPERTENSION
     Route: 048
     Dates: start: 20100301
  8. ENTOCORT EC [Concomitant]
     Route: 048
     Dates: start: 20100101
  9. FLONASE [Concomitant]
     Dosage: ONE PUFF
     Route: 045
     Dates: start: 20100501, end: 20100601
  10. POTASSIUM CHLORIDE [Concomitant]
     Route: 048
     Dates: start: 20100301
  11. PRILOSEC [Concomitant]
     Route: 048
     Dates: start: 20070101
  12. PRILOSEC [Concomitant]
  13. COLAZOL [Concomitant]
     Route: 048
     Dates: start: 20070101
  14. HYDROCHLOROTHIAZIDE [Concomitant]
     Route: 048
     Dates: start: 20100201
  15. HYDROCHLOROTHIAZIDE [Concomitant]
     Indication: HYPERTENSION

REACTIONS (2)
  - ARTHRALGIA [None]
  - PLANTAR FASCIITIS [None]
